FAERS Safety Report 9638366 (Version 1)
Quarter: 2013Q4

REPORT INFORMATION
  Report Type: Spontaneous
  Country: FR (occurrence: FR)
  Receive Date: 20131022
  Receipt Date: 20131022
  Transmission Date: 20140711
  Serious: Yes (Life-Threatening)
  Sender: FDA-Public Use
  Company Number: FR-GLAXOSMITHKLINE-B0930128A

PATIENT
  Age: 21 Year
  Sex: Male

DRUGS (2)
  1. ZOPHREN [Suspect]
     Indication: PREMEDICATION
     Dosage: 1INJ CYCLIC
     Route: 042
     Dates: start: 20130724, end: 20130724
  2. MABTHERA [Suspect]
     Indication: CHOLESTASIS
     Dosage: 600MG CYCLIC
     Route: 042
     Dates: start: 20130724, end: 20130724

REACTIONS (4)
  - Angioedema [Recovered/Resolved]
  - Bronchospasm [Recovered/Resolved]
  - Anaphylactic reaction [Recovered/Resolved]
  - Immune system disorder [Recovered/Resolved]
